FAERS Safety Report 13792300 (Version 1)
Quarter: 2017Q3

REPORT INFORMATION
  Report Type: Spontaneous
  Country: GB (occurrence: GB)
  Receive Date: 20170726
  Receipt Date: 20170726
  Transmission Date: 20171127
  Serious: Yes (Hospitalization)
  Sender: FDA-Public Use
  Company Number: GB-PFIZER INC-1423070

PATIENT
  Sex: Female

DRUGS (2)
  1. METHOTREXATE SODIUM. [Suspect]
     Active Substance: METHOTREXATE SODIUM
     Indication: ARTHRITIS
     Dosage: 20 MG, FREQ: 1 WEEK; INTERVAL: 1
     Route: 048
     Dates: start: 20091101, end: 20120501
  2. HUMIRA [Suspect]
     Active Substance: ADALIMUMAB
     Indication: ARTHRITIS
     Dosage: 40 MG, FREQ: 2 WEEK; INTERVAL: 1
     Route: 058
     Dates: start: 20100501, end: 20120501

REACTIONS (4)
  - Pyrexia [Unknown]
  - Pulmonary tuberculosis [Recovering/Resolving]
  - Hyperhidrosis [Unknown]
  - Cough [Unknown]

NARRATIVE: CASE EVENT DATE: 20120501
